FAERS Safety Report 8032333-4 (Version None)
Quarter: 2012Q1

REPORT INFORMATION
  Report Type: 
  Country: None (occurrence: None)
  Receive Date: 20120105
  Receipt Date: 20111223
  Transmission Date: 20120608
  Serious: Yes (Congenital Anomaly)
  Sender: FDA-Public Use
  Company Number: 2011MA018181

PATIENT
  Age: 3 Month
  Weight: 3.43 kg

DRUGS (2)
  1. TYPHIM VI [Suspect]
     Indication: IMMUNISATION
     Dosage: TRPL
     Route: 064
     Dates: start: 20110415, end: 20110415
  2. FERROUS SUL ELX [Suspect]
     Dosage: TRPL
     Route: 064
     Dates: start: 20110815

REACTIONS (3)
  - MATERNAL DRUGS AFFECTING FOETUS [None]
  - POSTMATURE BABY [None]
  - SYNDACTYLY [None]
